FAERS Safety Report 18468351 (Version 4)
Quarter: 2021Q2

REPORT INFORMATION
  Report Type: Report from Study
  Country: CA (occurrence: CA)
  Receive Date: 20201105
  Receipt Date: 20210524
  Transmission Date: 20210717
  Serious: Yes (Other)
  Sender: FDA-Public Use
  Company Number: PHHY2018CA067081

PATIENT
  Age: 51 Year
  Sex: Female

DRUGS (3)
  1. COSENTYX [Suspect]
     Active Substance: SECUKINUMAB
     Dosage: 450 MG, QMO
     Route: 058
  2. COSENTYX [Suspect]
     Active Substance: SECUKINUMAB
     Indication: PSORIATIC ARTHROPATHY
     Dosage: 300 MG, QMO
     Route: 058
  3. COSENTYX [Suspect]
     Active Substance: SECUKINUMAB
     Indication: PSORIASIS
     Dosage: 450 MG, QMO
     Route: 058
     Dates: start: 20180410

REACTIONS (12)
  - Self-consciousness [Unknown]
  - Thyroid mass [Unknown]
  - Condition aggravated [Unknown]
  - Product prescribing error [Unknown]
  - Pruritus [Unknown]
  - Animal bite [Unknown]
  - Sexual dysfunction [Unknown]
  - Blood pressure increased [Unknown]
  - Pain of skin [Unknown]
  - Product dose omission issue [Unknown]
  - Rabies [Unknown]
  - Infection [Unknown]

NARRATIVE: CASE EVENT DATE: 20180410
